FAERS Safety Report 14599888 (Version 1)
Quarter: 2018Q1

REPORT INFORMATION
  Report Type: Spontaneous
  Country: US (occurrence: US)
  Receive Date: 20180304
  Receipt Date: 20180304
  Transmission Date: 20180509
  Serious: No
  Sender: FDA-Public Use
  Company Number: None

PATIENT
  Age: 65 Year
  Sex: Female
  Weight: 47.25 kg

DRUGS (2)
  1. DELSYM [Suspect]
     Active Substance: DEXTROMETHORPHAN
     Indication: COUGH
     Dosage: ?          QUANTITY:10 OUNCE(S);?
     Route: 048
     Dates: start: 20180225, end: 20180225
  2. ZYRTEC [Concomitant]
     Active Substance: CETIRIZINE HYDROCHLORIDE

REACTIONS (5)
  - Dyspnoea [None]
  - Cough [None]
  - Facial pain [None]
  - Product taste abnormal [None]
  - Emotional distress [None]

NARRATIVE: CASE EVENT DATE: 20180225
